FAERS Safety Report 7745138 (Version 5)
Quarter: 2013Q1

REPORT INFORMATION
  Report Type: Report from Study
  Country: JP (occurrence: JP)
  Receive Date: 20101231
  Receipt Date: 20130304
  Transmission Date: 20140127
  Serious: Yes (Other)
  Sender: FDA-Public Use
  Company Number: PHHY2010JP87996

PATIENT
  Sex: 0
  Weight: 54 kg

DRUGS (11)
  1. AMN107 [Suspect]
     Indication: CHRONIC MYELOID LEUKAEMIA
     Dosage: 800 MG, QD
     Route: 048
     Dates: start: 20090622
  2. BASEN [Concomitant]
     Indication: DIABETES MELLITUS
     Dosage: 0.6 MG, UNK
     Route: 048
  3. AMARYL [Concomitant]
     Indication: DIABETES MELLITUS
     Dosage: 1 MG, UNK
     Route: 048
  4. AMARYL [Concomitant]
     Dosage: 2.5 MG, UNK
  5. AMARYL [Concomitant]
     Dosage: 3 MG, UNK
  6. AMARYL [Concomitant]
     Dosage: 3 DF, DAILY
     Route: 048
     Dates: start: 20100602
  7. ETIZOLAM [Concomitant]
     Dosage: 0.5 MG, UNK
     Route: 048
     Dates: start: 20090622
  8. MYSLEE [Concomitant]
     Dosage: 5 MG, UNK
     Route: 048
  9. ALLORINE [Concomitant]
     Indication: PROPHYLAXIS
     Dosage: 100 MG, UNK
     Route: 048
     Dates: start: 20090713, end: 20090921
  10. VOGLIBOSE [Concomitant]
     Indication: DIABETES MELLITUS
     Dosage: 0.9 MG, DAILY
     Route: 048
     Dates: start: 20090912
  11. VOGLIBOSE [Concomitant]
     Dosage: 3 DF, DAILY
     Dates: start: 20100602

REACTIONS (3)
  - Diabetes mellitus [Recovered/Resolved]
  - Blood potassium decreased [Recovered/Resolved]
  - Electrocardiogram QT prolonged [Recovered/Resolved]
